FAERS Safety Report 10468446 (Version 1)
Quarter: 2014Q3

REPORT INFORMATION
  Report Type: Spontaneous
  Country: US (occurrence: US)
  Receive Date: 20140922
  Receipt Date: 20140922
  Transmission Date: 20150326
  Serious: No
  Sender: FDA-Public Use
  Company Number: US-ALLERGAN-1313217US

PATIENT
  Age: 57 Year
  Sex: Female

DRUGS (3)
  1. PATADAY [Concomitant]
     Active Substance: OLOPATADINE HYDROCHLORIDE
     Indication: HYPERSENSITIVITY
  2. ALLREX NOS [Concomitant]
     Indication: HYPERSENSITIVITY
  3. LASTACAFT [Suspect]
     Active Substance: ALCAFTADINE
     Indication: HYPERSENSITIVITY
     Dosage: 2 UNK, QD
     Route: 047

REACTIONS (4)
  - Ocular discomfort [Recovered/Resolved]
  - Ocular hyperaemia [Recovered/Resolved]
  - Scleral hyperaemia [Recovered/Resolved]
  - Eye pain [Recovered/Resolved]
